FAERS Safety Report 25905797 (Version 1)
Quarter: 2025Q4

REPORT INFORMATION
  Report Type: Spontaneous
  Country: US (occurrence: None)
  Receive Date: 20251009
  Receipt Date: 20251009
  Transmission Date: 20260117
  Serious: Yes (Other)
  Sender: FDA-CTU
  Company Number: None

PATIENT
  Age: 81 Year
  Sex: Male

DRUGS (1)
  1. TALZENNA [Suspect]
     Active Substance: TALAZOPARIB TOSYLATE
     Indication: Prostate cancer
     Dosage: OTHER FREQUENCY : TAKE1CAPSULEBYMOUTH;?
     Route: 048

REACTIONS (3)
  - Atrial fibrillation [None]
  - Heart rate decreased [None]
  - Therapy interrupted [None]
